FAERS Safety Report 7042548-X (Version None)
Quarter: 2010Q4

REPORT INFORMATION
  Report Type: 
  Country: None (occurrence: None)
  Receive Date: 20101013
  Receipt Date: 20091118
  Transmission Date: 20110411
  Serious: No
  Sender: FDA-Public Use
  Company Number: US-ASTRAZENECA-2009SE27291

PATIENT
  Age: 78 Year
  Sex: Female

DRUGS (4)
  1. SYMBICORT [Suspect]
     Indication: CHRONIC OBSTRUCTIVE PULMONARY DISEASE
     Dosage: TOTAL DAILY DOSE 320 MCG
     Route: 055
     Dates: start: 20090910, end: 20090924
  2. PROVENTIL [Concomitant]
  3. METOPROLOL [Concomitant]
  4. CRESTOR [Concomitant]

REACTIONS (1)
  - VOCAL CORD PARALYSIS [None]
